FAERS Safety Report 10052737 (Version 1)
Quarter: 2014Q2

REPORT INFORMATION
  Report Type: Spontaneous
  Country: US (occurrence: US)
  Receive Date: 20140402
  Receipt Date: 20140402
  Transmission Date: 20141212
  Serious: Yes (Other)
  Sender: FDA-Public Use
  Company Number: US-JNJFOC-20140315250

PATIENT
  Sex: Male

DRUGS (1)
  1. STELARA [Suspect]
     Indication: PRODUCT USED FOR UNKNOWN INDICATION
     Route: 058

REACTIONS (6)
  - Syncope [Unknown]
  - Paralysis [Not Recovered/Not Resolved]
  - Adverse event [Unknown]
  - Dizziness [Unknown]
  - Muscle twitching [Not Recovered/Not Resolved]
  - Asthenia [Unknown]
